FAERS Safety Report 23071246 (Version 1)
Quarter: 2023Q4

REPORT INFORMATION
  Report Type: Spontaneous
  Country: DE (occurrence: DE)
  Receive Date: 20231016
  Receipt Date: 20231016
  Transmission Date: 20240110
  Serious: Yes (Other)
  Sender: FDA-Public Use
  Company Number: DE-BAYER-2023A143857

PATIENT

DRUGS (2)
  1. XARELTO [Interacting]
     Active Substance: RIVAROXABAN
     Indication: Product used for unknown indication
     Dosage: 20 MG
     Route: 048
     Dates: start: 2015
  2. ASPIRIN [Concomitant]
     Active Substance: ASPIRIN

REACTIONS (9)
  - Epistaxis [Unknown]
  - Haemorrhage subcutaneous [Unknown]
  - Haemorrhage [Unknown]
  - Atrial fibrillation [Unknown]
  - Seasonal allergy [Unknown]
  - Drug interaction [Unknown]
  - Ocular hyperaemia [Unknown]
  - Rash macular [Unknown]
  - Drug intolerance [Unknown]
